FAERS Safety Report 6800816-8 (Version None)
Quarter: 2010Q2

REPORT INFORMATION
  Report Type: 
  Country: None (occurrence: None)
  Receive Date: 20100629
  Receipt Date: 20100616
  Transmission Date: 20101027
  Serious: Yes (Hospitalization, Other)
  Sender: FDA-Public Use
  Company Number: JP-PFIZER INC-2010075066

PATIENT
  Age: 56 Year
  Sex: Female

DRUGS (2)
  1. METHYLPREDNISOLONE [Suspect]
     Indication: MYASTHENIA GRAVIS
     Dosage: 15 MG, UNK
  2. METHYLPREDNISOLONE [Suspect]
     Dosage: 30 MG, UNK

REACTIONS (1)
  - PSYCHOTIC DISORDER [None]
